FAERS Safety Report 15326130 (Version 2)
Quarter: 2019Q1

REPORT INFORMATION
  Report Type: Spontaneous
  Country: JP (occurrence: JP)
  Receive Date: 20180828
  Receipt Date: 20190118
  Transmission Date: 20190417
  Serious: Yes (Death, Other)
  Sender: FDA-Public Use
  Company Number: JP-ACTELION-A-CH2018-173059

PATIENT
  Age: 50 Year
  Sex: Female
  Weight: 30.3 kg

DRUGS (20)
  1. UPTRAVI [Suspect]
     Active Substance: SELEXIPAG
     Indication: PULMONARY ARTERIAL HYPERTENSION
     Dosage: 0.2 MG, BID
     Route: 048
     Dates: start: 20180421, end: 20180526
  2. AZOSEMIDE [Suspect]
     Active Substance: AZOSEMIDE
     Indication: CARDIAC FAILURE
     Dosage: 30 MG, QD
     Route: 048
     Dates: start: 20180424, end: 20180508
  3. LOXOPROFEN [Concomitant]
     Active Substance: LOXOPROFEN
     Dosage: 60 MG, QD
     Dates: start: 20180503, end: 20180503
  4. FUROSEMIDE. [Suspect]
     Active Substance: FUROSEMIDE
     Indication: CARDIAC FAILURE
     Dosage: 20 MG, QD
     Route: 065
     Dates: start: 20180525
  5. ENALAPRIL MALEATE. [Concomitant]
     Active Substance: ENALAPRIL MALEATE
     Dosage: 2.5 MG, QD
  6. LOXOPROFEN [Concomitant]
     Active Substance: LOXOPROFEN
     Dosage: 60 MG, QD
     Dates: start: 20180430, end: 20180430
  7. LOXOPROFEN [Concomitant]
     Active Substance: LOXOPROFEN
     Dosage: 60 MG, QD
     Dates: start: 20180510, end: 20180511
  8. LOXOPROFEN [Concomitant]
     Active Substance: LOXOPROFEN
     Dosage: 60 MG, QD
     Dates: start: 20180519, end: 20180519
  9. SAMSCA [Concomitant]
     Active Substance: TOLVAPTAN
     Indication: CARDIAC FAILURE
     Dosage: 3.75 MG, QD
     Dates: start: 20180517
  10. PALUX [Concomitant]
     Active Substance: ALPROSTADIL
     Dosage: 10 MCG, QD
     Dates: end: 20180429
  11. SPIRONOLACTONE. [Concomitant]
     Active Substance: SPIRONOLACTONE
     Dosage: 25 MG, QD
  12. TAKECAB [Concomitant]
     Active Substance: VONOPRAZAN FUMURATE
     Indication: GASTROOESOPHAGEAL REFLUX DISEASE
     Dosage: 10 MG, QD
  13. PIMOBENDAN [Concomitant]
     Active Substance: PIMOBENDAN
     Indication: CARDIAC FAILURE
     Dosage: 2.5 MG, QD
  14. REVATIO [Concomitant]
     Active Substance: SILDENAFIL CITRATE
     Indication: PULMONARY ARTERIAL HYPERTENSION
     Dosage: 20 MG, QD
     Dates: start: 20180509, end: 20180521
  15. LOXOPROFEN [Concomitant]
     Active Substance: LOXOPROFEN
     Dosage: 60 MG, QD
     Dates: start: 20180526, end: 20180526
  16. LOXOPROFEN [Concomitant]
     Active Substance: LOXOPROFEN
     Indication: SYSTEMIC SCLERODERMA
     Dosage: 60 MG, QD
     Dates: start: 20180423, end: 20180423
  17. JUVELA N [Concomitant]
     Active Substance: TOCOPHERYL NICOTINATE, D-.ALPHA.
     Dosage: 600 MG, QD
  18. FUROSEMIDE. [Suspect]
     Active Substance: FUROSEMIDE
     Dosage: 10 MG, QD
     Route: 048
     Dates: start: 20180509, end: 20180510
  19. WARFARIN [Concomitant]
     Active Substance: WARFARIN
     Indication: CARDIAC FAILURE
     Dosage: 3 MG, QD
     Dates: start: 20180427
  20. ISOSORBIDE DINITRATE. [Concomitant]
     Active Substance: ISOSORBIDE DINITRATE
     Indication: CARDIAC FAILURE
     Dosage: 100 MG, QD
     Dates: end: 20180422

REACTIONS (7)
  - Condition aggravated [Fatal]
  - Brain natriuretic peptide abnormal [Not Recovered/Not Resolved]
  - Pulmonary arterial hypertension [Fatal]
  - Skin necrosis [Not Recovered/Not Resolved]
  - Hypotension [Recovering/Resolving]
  - Hyponatraemia [Recovering/Resolving]
  - Oedema peripheral [Not Recovered/Not Resolved]

NARRATIVE: CASE EVENT DATE: 20180425
